FAERS Safety Report 25252368 (Version 2)
Quarter: 2025Q2

REPORT INFORMATION
  Report Type: Spontaneous
  Country: US (occurrence: US)
  Receive Date: 20250429
  Receipt Date: 20250529
  Transmission Date: 20250716
  Serious: Yes (Hospitalization, Other)
  Sender: BAYER HEALTHCARE PHARMACEUTICALS INC.
  Company Number: US-BAYER-2025A053945

PATIENT
  Age: 63 Year
  Sex: Male
  Weight: 96.7 kg

DRUGS (23)
  1. REGORAFENIB [Suspect]
     Active Substance: REGORAFENIB
     Indication: Neoplasm
     Dates: start: 20250211
  2. REGORAFENIB [Suspect]
     Active Substance: REGORAFENIB
     Indication: Colorectal cancer metastatic
  3. LIVMONIPLIMAB [Suspect]
     Active Substance: LIVMONIPLIMAB
     Indication: Neoplasm
     Dosage: 400 MG, Q3WK
     Route: 042
     Dates: start: 20241210, end: 20250121
  4. BUDIGALIMAB [Suspect]
     Active Substance: BUDIGALIMAB
     Indication: Neoplasm
     Dosage: 375 MG, Q3WK
     Route: 042
     Dates: start: 20241210, end: 20250121
  5. ALPRAZOLAM [Concomitant]
     Active Substance: ALPRAZOLAM
     Indication: Insomnia
     Dates: start: 20190128
  6. AMLODIPINE [Concomitant]
     Active Substance: AMLODIPINE BESYLATE
  7. VITAMIN C [Concomitant]
     Active Substance: ASCORBIC ACID
     Indication: Supplementation therapy
     Dosage: 500 MG, QD
     Dates: start: 2021
  8. ASPIRIN [Concomitant]
     Active Substance: ASPIRIN
     Indication: Pain management
     Dosage: 81 MG, QD
     Dates: start: 20231019
  9. ATORVASTATIN [Concomitant]
     Active Substance: ATORVASTATIN
     Indication: Hypertriglyceridaemia
     Dosage: 40 MG, QD
     Dates: start: 20241017
  10. VITAMIN B12 [Concomitant]
     Active Substance: CYANOCOBALAMIN
     Indication: Supplementation therapy
     Dates: start: 20231201
  11. IBUPROFEN [Concomitant]
     Active Substance: IBUPROFEN
     Indication: Arthralgia
     Dates: start: 20241008
  12. IBUPROFEN [Concomitant]
     Active Substance: IBUPROFEN
     Indication: Back pain
  13. IBUPROFEN [Concomitant]
     Active Substance: IBUPROFEN
     Indication: Palmar-plantar erythrodysaesthesia syndrome
  14. MAGNESIUM [Concomitant]
     Active Substance: MAGNESIUM
     Indication: Hypomagnesaemia
     Dosage: 250 MG, QD
     Dates: start: 20190506
  15. METOPROLOL [Concomitant]
     Active Substance: METOPROLOL
     Indication: Hypertension
     Dosage: 25 MG, QD
     Dates: start: 20240907
  16. VITAMIN D [Concomitant]
     Active Substance: VITAMIN D NOS
     Indication: Supplementation therapy
     Dates: start: 20200108
  17. QUERCETIN [Concomitant]
     Active Substance: QUERCETIN
     Indication: Routine health maintenance
     Dosage: 500 MG, QD
     Dates: start: 2022
  18. VITAMIN E [Concomitant]
     Active Substance: .ALPHA.-TOCOPHEROL
     Indication: Routine health maintenance
     Dates: start: 202312
  19. ZINC [Concomitant]
     Active Substance: ZINC
     Indication: Routine health maintenance
     Dosage: 40 MG, QD
     Dates: start: 2022
  20. DEXAMETHASONE [Concomitant]
     Active Substance: DEXAMETHASONE
     Indication: Prophylaxis
     Dosage: 2 MG, QD
     Dates: start: 20250211, end: 20250226
  21. MENTHOL\ZINC OXIDE [Concomitant]
     Active Substance: MENTHOL\ZINC OXIDE
     Indication: Dry skin
     Dates: start: 20241209
  22. ATARAX [Suspect]
     Active Substance: HYDROXYZINE HYDROCHLORIDE
  23. LEVETIRACETAM [Concomitant]
     Active Substance: LEVETIRACETAM
     Indication: Seizure prophylaxis
     Dosage: 750 MG, BID
     Dates: start: 20250204, end: 20250206

REACTIONS (15)
  - Pneumonia [Recovered/Resolved]
  - Rash maculo-papular [Not Recovered/Not Resolved]
  - Neoplasm progression [None]
  - Central nervous system lesion [None]
  - Pyrexia [Recovered/Resolved]
  - Nasal congestion [None]
  - COVID-19 [None]
  - Productive cough [None]
  - Dyspnoea [None]
  - Malaise [Not Recovered/Not Resolved]
  - Pyrexia [Not Recovered/Not Resolved]
  - Headache [Not Recovered/Not Resolved]
  - Diarrhoea [None]
  - Pruritus [None]
  - Erythema [None]

NARRATIVE: CASE EVENT DATE: 20250304
